FAERS Safety Report 7215976-7 (Version None)
Quarter: 2011Q1

REPORT INFORMATION
  Report Type: 
  Country: None (occurrence: None)
  Receive Date: 20110107
  Receipt Date: 20110103
  Transmission Date: 20110831
  Serious: Yes (Hospitalization)
  Sender: FDA-Public Use
  Company Number: FR-KINGPHARMUSA00001-K201100001

PATIENT
  Age: 60 Year
  Sex: Male

DRUGS (10)
  1. LASIX [Concomitant]
     Dosage: UNK
  2. LANTUS [Concomitant]
     Dosage: UNK
  3. CARDENSIEL [Concomitant]
  4. TAHOR [Concomitant]
     Dosage: UNK
  5. AMLOR [Concomitant]
  6. NITROGLYCERIN [Concomitant]
     Dosage: UNK
  7. ALDACTONE [Suspect]
     Dosage: UNK
     Route: 048
     Dates: end: 20100929
  8. ALTACE [Suspect]
     Indication: CARDIAC FAILURE
     Dosage: 10 MG, QD
     Route: 048
     Dates: end: 20101113
  9. ALDACTONE [Suspect]
     Indication: CARDIAC FAILURE
     Dosage: 50 MG, QD
     Route: 048
     Dates: start: 20100930, end: 20101113
  10. KARDEGIC [Concomitant]

REACTIONS (7)
  - VOMITING [None]
  - DIARRHOEA [None]
  - LOSS OF CONSCIOUSNESS [None]
  - RENAL FAILURE ACUTE [None]
  - HYPERKALAEMIA [None]
  - MALAISE [None]
  - CARDIAC FAILURE [None]
